FAERS Safety Report 7755202-3 (Version None)
Quarter: 2011Q3

REPORT INFORMATION
  Report Type: 
  Country: None (occurrence: None)
  Receive Date: 20110916
  Receipt Date: 20110808
  Transmission Date: 20111222
  Serious: No
  Sender: FDA-Public Use
  Company Number: US-GLAXOSMITHKLINE-A0940079A

PATIENT
  Age: 65 Year
  Sex: Male

DRUGS (8)
  1. PROMACTA [Suspect]
     Indication: IDIOPATHIC THROMBOCYTOPENIC PURPURA
     Dosage: 25MG PER DAY
     Route: 048
     Dates: start: 20090301
  2. LAMOTRIGINE [Concomitant]
  3. POTASSIUM CHLORIDE [Concomitant]
  4. PROPRANOLOL [Concomitant]
  5. ZOLPIDEM [Concomitant]
  6. FUROSEMIDE [Concomitant]
  7. SPIRONOLACTONE [Concomitant]
  8. TRAMADOL HCL [Concomitant]

REACTIONS (3)
  - BREAST ENLARGEMENT [None]
  - MALAISE [None]
  - NAUSEA [None]
